FAERS Safety Report 6671274-1 (Version None)
Quarter: 2010Q2

REPORT INFORMATION
  Report Type: 
  Country: None (occurrence: None)
  Receive Date: 20100407
  Receipt Date: 20100329
  Transmission Date: 20101027
  Serious: Yes (Other)
  Sender: FDA-Public Use
  Company Number: US-ROCHE-689206

PATIENT
  Age: 44 Year
  Sex: Female

DRUGS (3)
  1. BEVACIZUMAB [Suspect]
     Indication: BREAST CANCER
     Dosage: DATE OF MOST RECENT DOSE: 12 DECEMBER 2008.
     Route: 065
  2. CYCLOPHOSPHAMIDE [Suspect]
     Indication: BREAST CANCER
     Dosage: DATE OF MOST RECENT DOSE: 12 DECEMBER 2008.
     Route: 065
  3. EPIRUBICIN [Suspect]
     Indication: BREAST CANCER
     Dosage: DATE OF MOST RECENT DOSE: 12 DECEMBER 2008.
     Route: 065

REACTIONS (1)
  - SYNCOPE [None]
